FAERS Safety Report 8197137-0 (Version None)
Quarter: 2012Q1

REPORT INFORMATION
  Report Type: 
  Country: None (occurrence: None)
  Receive Date: 20120309
  Receipt Date: 20120227
  Transmission Date: 20120608
  Serious: Yes (Hospitalization)
  Sender: FDA-Public Use
  Company Number: TN-SANOFI-AVENTIS-2012SA009828

PATIENT
  Age: 73 Year
  Sex: Male
  Weight: 92 kg

DRUGS (6)
  1. PREDNISONE [Suspect]
     Indication: PROSTATE CANCER
     Route: 048
     Dates: start: 20120123, end: 20120212
  2. ADEX [Concomitant]
     Route: 048
     Dates: start: 19981101
  3. GLUCOPHAGE [Concomitant]
     Route: 048
     Dates: start: 19981101
  4. LYRIS [Concomitant]
     Route: 048
     Dates: start: 19981101
  5. LOPRIL /FRA/ [Concomitant]
     Route: 048
     Dates: start: 19981101
  6. CABAZITAXEL [Suspect]
     Indication: PROSTATE CANCER
     Route: 042
     Dates: start: 20120123, end: 20120123

REACTIONS (1)
  - HYPOCALCAEMIA [None]
